FAERS Safety Report 5852051-8 (Version None)
Quarter: 2008Q3

REPORT INFORMATION
  Report Type: 
  Country: None (occurrence: None)
  Receive Date: 20080820
  Receipt Date: 20080820
  Transmission Date: 20090109
  Serious: Yes (Hospitalization)
  Sender: FDA-Public Use
  Company Number: None

PATIENT
  Age: 59 Year
  Sex: Male
  Weight: 95 kg

DRUGS (2)
  1. MYFORTIC [Suspect]
     Indication: PROPHYLAXIS AGAINST TRANSPLANT REJECTION
     Dosage: 750 MG TWICE DAILY PO
     Route: 048
     Dates: start: 20061005
  2. PROGRAF [Suspect]
     Dosage: 2 MG AM 1.5 MG PM DAILY PO
     Route: 048
     Dates: start: 20071001

REACTIONS (1)
  - TYPE 2 DIABETES MELLITUS [None]
